FAERS Safety Report 22637844 (Version 5)
Quarter: 2024Q1

REPORT INFORMATION
  Report Type: Report from Study
  Country: JP (occurrence: JP)
  Receive Date: 20230626
  Receipt Date: 20240306
  Transmission Date: 20240410
  Serious: Yes (Death)
  Sender: FDA-Public Use
  Company Number: JP-ABBVIE-19K-087-3170587-00

PATIENT
  Sex: Male
  Weight: 61 kg

DRUGS (4)
  1. CARBIDOPA\LEVODOPA [Suspect]
     Active Substance: CARBIDOPA\LEVODOPA
     Indication: Parkinson^s disease
     Dosage: MD : 9.1 ML CD : 2.6 ML/HR ? 15 HRS?MD: 12.1 ML, CD: 2.4 ML/HRS - 16 HRS, ED: 1 ML/UNIT - 1
     Route: 050
     Dates: start: 20191114
  2. CARBIDOPA\LEVODOPA [Suspect]
     Active Substance: CARBIDOPA\LEVODOPA
  3. DROXIDOPA [Concomitant]
     Active Substance: DROXIDOPA
     Indication: Parkinson^s disease
     Dosage: TIME INTERVAL: 0.33333333 DAYS: 600 MILLIGRAM
     Route: 048
  4. DROXIDOPA [Concomitant]
     Active Substance: DROXIDOPA
     Indication: Parkinson^s disease
     Route: 048
     Dates: start: 20191113

REACTIONS (9)
  - Coronavirus infection [Fatal]
  - Freezing phenomenon [Unknown]
  - Hypoxic-ischaemic encephalopathy [Fatal]
  - Musculoskeletal stiffness [Unknown]
  - Mobility decreased [Unknown]
  - Aspiration [Fatal]
  - Weight increased [Unknown]
  - Dyskinesia [Unknown]
  - Stoma site discharge [Recovered/Resolved]

NARRATIVE: CASE EVENT DATE: 20230101
